FAERS Safety Report 13861664 (Version 1)
Quarter: 2017Q3

REPORT INFORMATION
  Report Type: Spontaneous
  Country: US (occurrence: US)
  Receive Date: 20170811
  Receipt Date: 20170811
  Transmission Date: 20171127
  Serious: Yes (Other)
  Sender: FDA-Public Use
  Company Number: US-TEVA-796080USA

PATIENT

DRUGS (2)
  1. VENLAFAXINE [Suspect]
     Active Substance: VENLAFAXINE HYDROCHLORIDE
     Dates: start: 20170715
  2. VENLAFAXINE [Suspect]
     Active Substance: VENLAFAXINE HYDROCHLORIDE
     Dates: start: 20170725

REACTIONS (8)
  - Asthenia [Not Recovered/Not Resolved]
  - Muscular weakness [Unknown]
  - Gait inability [Unknown]
  - Adverse drug reaction [Unknown]
  - Sleep disorder [Unknown]
  - Disorientation [Unknown]
  - Tremor [Not Recovered/Not Resolved]
  - Dyspnoea [Unknown]

NARRATIVE: CASE EVENT DATE: 201707
